FAERS Safety Report 5392456-5 (Version None)
Quarter: 2007Q3

REPORT INFORMATION
  Report Type: 
  Country: None (occurrence: None)
  Receive Date: 20070720
  Receipt Date: 20070716
  Transmission Date: 20080115
  Serious: Yes (Hospitalization, Congenital Anomaly, Other)
  Sender: FDA-Public Use
  Company Number: AR-BRISTOL-MYERS SQUIBB COMPANY-13807516

PATIENT
  Age: 3 Month
  Sex: Male
  Weight: 3 kg

DRUGS (6)
  1. REYATAZ [Suspect]
     Route: 064
  2. REYATAZ [Suspect]
     Route: 064
  3. ZIDOVUDINE [Suspect]
     Dosage: TRANSPLACENTAL EXPOSURE DURING THE ENTIRE PREGNANCY
     Route: 064
  4. TENOFOVIR [Suspect]
     Dosage: TRANSPLACENTAL EXPOSURE DURING THE ENTIRE PREGNANCY
     Route: 064
  5. RITONAVIR [Suspect]
     Dosage: TRANSPLACENTAL EXPOSURE DURING THE ENTIRE PREGNANCY
     Route: 064
  6. ZIDOVUDINE [Concomitant]
     Dosage: TRANSPLACENTAL EXPOSURE DURING THE ENTIRE PREGNANCY

REACTIONS (5)
  - CARDIAC MURMUR [None]
  - HYPOSPADIAS [None]
  - JAUNDICE [None]
  - PERONEAL NERVE PALSY [None]
  - PREMATURE BABY [None]
